FAERS Safety Report 4738351-3 (Version None)
Quarter: 2005Q3

REPORT INFORMATION
  Report Type: 
  Country: None (occurrence: None)
  Receive Date: 20050728
  Receipt Date: 20050413
  Transmission Date: 20060218
  Serious: No
  Sender: FDA-Public Use
  Company Number: 200513118US

PATIENT
  Sex: Male

DRUGS (1)
  1. KETEK [Suspect]
     Indication: LYME DISEASE

REACTIONS (2)
  - HEADACHE [None]
  - LETHARGY [None]
